FAERS Safety Report 23083098 (Version 1)
Quarter: 2023Q4

REPORT INFORMATION
  Report Type: Spontaneous
  Country: US (occurrence: None)
  Receive Date: 20231018
  Receipt Date: 20231018
  Transmission Date: 20240110
  Serious: Yes (Hospitalization)
  Sender: FDA-Public Use
  Company Number: None

PATIENT
  Age: 29 Year
  Sex: Male
  Weight: 83 kg

DRUGS (2)
  1. HALOPERIDOL DECANOATE [Suspect]
     Active Substance: HALOPERIDOL DECANOATE
     Dosage: FREQUENCY : ONCE;?
     Route: 030
     Dates: start: 20230213, end: 20230213
  2. HALOPERIDOL [Suspect]
     Active Substance: HALOPERIDOL
     Dates: start: 20230209, end: 20230213

REACTIONS (5)
  - Extrapyramidal disorder [None]
  - Hypertension [None]
  - Neuroleptic malignant syndrome [None]
  - Parkinsonism [None]
  - Tachycardia [None]

NARRATIVE: CASE EVENT DATE: 20230222
